FAERS Safety Report 20629641 (Version 1)
Quarter: 2022Q1

REPORT INFORMATION
  Report Type: Spontaneous
  Country: DE (occurrence: None)
  Receive Date: 20220323
  Receipt Date: 20220323
  Transmission Date: 20220423
  Serious: Yes (Hospitalization, Other)
  Sender: FDA-Public Use
  Company Number: 2022A118933

PATIENT
  Age: 80 Year
  Sex: Female

DRUGS (2)
  1. ACLIDINIUM BROMIDE\FORMOTEROL FUMARATE [Suspect]
     Active Substance: ACLIDINIUM BROMIDE\FORMOTEROL FUMARATE
     Route: 055
  2. THEOPHYILLINE [Concomitant]

REACTIONS (7)
  - Atrial fibrillation [Unknown]
  - Chest discomfort [Unknown]
  - Respiratory distress [Unknown]
  - Wheezing [Unknown]
  - Fractional exhaled nitric oxide increased [Unknown]
  - Venous thrombosis limb [Unknown]
  - Parkinson^s disease [Unknown]

NARRATIVE: CASE EVENT DATE: 20210901
